FAERS Safety Report 19056277 (Version 1)
Quarter: 2021Q1

REPORT INFORMATION
  Report Type: Spontaneous
  Country: US (occurrence: US)
  Receive Date: 20210325
  Receipt Date: 20210325
  Transmission Date: 20210420
  Serious: Yes (Other)
  Sender: FDA-Public Use
  Company Number: US-PFIZER INC-2020492897

PATIENT
  Age: 76 Year
  Sex: Female

DRUGS (2)
  1. IBRANCE [Suspect]
     Active Substance: PALBOCICLIB
     Dosage: 100 MG, UNK
     Dates: start: 20201120
  2. IBRANCE [Suspect]
     Active Substance: PALBOCICLIB
     Dosage: 100 MG, UNK
     Dates: start: 20201124

REACTIONS (9)
  - Headache [Unknown]
  - Extra dose administered [Unknown]
  - Blood pressure increased [Recovering/Resolving]
  - Diabetes mellitus [Unknown]
  - Somnolence [Unknown]
  - Blindness transient [Unknown]
  - Vision blurred [Unknown]
  - Dehydration [Unknown]
  - Renal failure [Unknown]

NARRATIVE: CASE EVENT DATE: 20201211
